FAERS Safety Report 8092959-9 (Version None)
Quarter: 2012Q1

REPORT INFORMATION
  Report Type: 
  Country: None (occurrence: None)
  Receive Date: 20120131
  Receipt Date: 20120123
  Transmission Date: 20120608
  Serious: Yes (Hospitalization, Other)
  Sender: FDA-Public Use
  Company Number: US-BAYER-2011-087724

PATIENT
  Age: 38 Year
  Sex: Female
  Weight: 88 kg

DRUGS (1)
  1. YAZ [Suspect]
     Indication: MENORRHAGIA
     Dosage: UNK
     Dates: start: 20090701, end: 20090801

REACTIONS (5)
  - INJURY [None]
  - PULMONARY EMBOLISM [None]
  - EMOTIONAL DISORDER [None]
  - PAIN [None]
  - DEEP VEIN THROMBOSIS [None]
